FAERS Safety Report 9613574 (Version 2)
Quarter: 2013Q4

REPORT INFORMATION
  Report Type: Spontaneous
  Country: US (occurrence: US)
  Receive Date: 20131010
  Receipt Date: 20131031
  Transmission Date: 20140711
  Serious: No
  Sender: FDA-Public Use
  Company Number: US-009507513-1310USA002004

PATIENT
  Sex: Female
  Weight: 86.17 kg

DRUGS (1)
  1. DULERA [Suspect]
     Dosage: 2 INHALATIONS, BID (200/5MG)
     Route: 055
     Dates: start: 20120406, end: 20121018

REACTIONS (2)
  - Muscle spasms [Recovered/Resolved]
  - Tremor [Unknown]
